FAERS Safety Report 13065776 (Version 1)
Quarter: 2016Q4

REPORT INFORMATION
  Report Type: Report from Study
  Country: DE (occurrence: DE)
  Receive Date: 20161227
  Receipt Date: 20161227
  Transmission Date: 20170207
  Serious: Yes (Other)
  Sender: FDA-Public Use
  Company Number: DE-TEVA-724280GER

PATIENT
  Age: 66 Year
  Sex: Female

DRUGS (4)
  1. AZATHIOPRINE. [Suspect]
     Active Substance: AZATHIOPRINE
     Dosage: 150 MILLIGRAM DAILY;
     Route: 065
     Dates: start: 200403, end: 200411
  2. METHOTREXATE. [Suspect]
     Active Substance: METHOTREXATE
     Dosage: 2.5 MILLIGRAM DAILY; AT LAST FOLLOW-UP IN JAN-2016
  3. METHOTREXATE. [Suspect]
     Active Substance: METHOTREXATE
     Dosage: 15MG/WEEK
     Dates: start: 200411
  4. GLATIRAMER ACETATE. [Suspect]
     Active Substance: GLATIRAMER ACETATE
     Indication: PRODUCT USED FOR UNKNOWN INDICATION
     Dosage: UNKNOWN FORM-STRENGTH
     Route: 065

REACTIONS (4)
  - Coordination abnormal [Unknown]
  - Optic neuritis [Recovered/Resolved]
  - Myelitis [Recovered/Resolved]
  - Gait disturbance [Unknown]

NARRATIVE: CASE EVENT DATE: 200601
